FAERS Safety Report 9162353 (Version 1)
Quarter: 2013Q1

REPORT INFORMATION
  Report Type: Spontaneous
  Country: GB (occurrence: None)
  Receive Date: 20130225
  Receipt Date: 20130225
  Transmission Date: 20140127
  Serious: Yes (Hospitalization)
  Sender: FDA-Public Use
  Company Number: 2013-02668

PATIENT
  Age: 87 Year
  Sex: Male
  Weight: 70 kg

DRUGS (5)
  1. DONEPEZIL HYDROCHLORIDE [Suspect]
     Indication: DEMENTIA
     Route: 048
     Dates: end: 20130130
  2. CIMETIDINE (CIMETIDINE) [Concomitant]
  3. SIMVASTATIN (SIMVASTATIN) [Concomitant]
  4. THIAMINE HCL (THIAMINE HYDROCHLORIDE) [Concomitant]
  5. FYBOGEL MEBEVERINE (MEBEVERINE HYDROCHLORIDE, PLANTAGO OVATA HUSK) [Concomitant]

REACTIONS (6)
  - Syncope [None]
  - Hyperhidrosis [None]
  - Cold sweat [None]
  - Vomiting [None]
  - Bradycardia [None]
  - Loss of consciousness [None]
